FAERS Safety Report 9996242 (Version 1)
Quarter: 2014Q1

REPORT INFORMATION
  Report Type: Spontaneous
  Country: US (occurrence: None)
  Receive Date: 20140310
  Receipt Date: 20140310
  Transmission Date: 20141002
  Serious: No
  Sender: FDA-Public Use
  Company Number: None

PATIENT
  Age: 51 Year
  Sex: Male
  Weight: 94.35 kg

DRUGS (1)
  1. DULOXETINE DELAYED-RELEASE [Suspect]
     Indication: RESTLESS LEGS SYNDROME
     Route: 048
     Dates: start: 20140303, end: 20140306

REACTIONS (2)
  - Migraine [None]
  - Drug withdrawal syndrome [None]
